FAERS Safety Report 9131879 (Version 1)
Quarter: 2013Q1

REPORT INFORMATION
  Report Type: Report from Study
  Country: US (occurrence: US)
  Receive Date: 20130301
  Receipt Date: 20130301
  Transmission Date: 20140127
  Serious: No
  Sender: FDA-Public Use
  Company Number: US-MYLANLABS-2012S1019329

PATIENT
  Age: 38 Year
  Sex: Male
  Weight: 116.12 kg

DRUGS (6)
  1. AMNESTEEM CAPSULES [Suspect]
     Indication: ACNE
     Route: 048
     Dates: start: 20120509, end: 20120913
  2. AMNESTEEM CAPSULES [Suspect]
     Indication: DERMATITIS PAPILLARIS CAPILLITII
     Route: 048
     Dates: start: 20120509, end: 20120913
  3. CLARAVIS [Suspect]
     Indication: ACNE
     Route: 048
     Dates: start: 20120509, end: 20120913
  4. CLARAVIS [Suspect]
     Indication: DERMATITIS PAPILLARIS CAPILLITII
     Route: 048
     Dates: start: 20120509, end: 20120913
  5. HCTZ [Concomitant]
     Route: 048
  6. LISINOPRIL [Concomitant]
     Route: 048

REACTIONS (3)
  - Drug ineffective [Not Recovered/Not Resolved]
  - Acne [Not Recovered/Not Resolved]
  - Blood triglycerides increased [Not Recovered/Not Resolved]
